FAERS Safety Report 19593761 (Version 2)
Quarter: 2022Q1

REPORT INFORMATION
  Report Type: Report from Study
  Country: CA (occurrence: CA)
  Receive Date: 20210722
  Receipt Date: 20220203
  Transmission Date: 20220423
  Serious: Yes (Other)
  Sender: FDA-Public Use
  Company Number: CA-CELGENE-CAN-20210703721

PATIENT
  Age: 78 Year
  Sex: Male
  Weight: 79.2 kg

DRUGS (3)
  1. REBLOZYL [Suspect]
     Active Substance: LUSPATERCEPT-AAMT
     Indication: Myelodysplastic syndrome
     Dosage: 1 MILLIGRAM/KILOGRAM?75 MG VIAL?25 MG VIAL
     Route: 058
     Dates: start: 20210623
  2. HUMAN RED BLOOD CELL [Concomitant]
     Active Substance: HUMAN RED BLOOD CELL
     Indication: Infusion
     Dosage: 2 UNITS
     Route: 065
     Dates: start: 20210709
  3. PLATELETS [Concomitant]
     Active Substance: HUMAN PLATELET, ALLOGENIC
     Indication: Infusion
     Dosage: 2 UNITS
     Route: 065
     Dates: start: 20210709

REACTIONS (3)
  - Carpal tunnel syndrome [Recovering/Resolving]
  - Full blood count decreased [Recovering/Resolving]
  - Platelet count decreased [Recovering/Resolving]

NARRATIVE: CASE EVENT DATE: 20210707
